FAERS Safety Report 9283945 (Version 1)
Quarter: 2013Q2

REPORT INFORMATION
  Report Type: Spontaneous
  Country: US (occurrence: US)
  Receive Date: 20130510
  Receipt Date: 20130510
  Transmission Date: 20140414
  Serious: Yes (Death)
  Sender: FDA-Public Use
  Company Number: US-COVIDIEN/TYCO HEALTHCARE/MALLINCKRODT-T201300961

PATIENT
  Age: 47 Year
  Sex: Female
  Weight: 64.85 kg

DRUGS (7)
  1. FENTANYL TRANSDERMAL SYSTEM [Suspect]
     Indication: PAIN
     Dosage: 25 UG/HR, Q 3 DAYS
     Route: 062
     Dates: start: 201212, end: 20130218
  2. HYDROCODONE BITARTRATE AND ACETAMINOPHEN [Suspect]
     Indication: PAIN
     Dosage: 7.5/500 MG, 1 TAB BID
     Dates: start: 201301
  3. XANAX [Concomitant]
     Indication: MENTAL DISORDER
     Dosage: 1 MG
     Dates: start: 201204
  4. FIORICET [Concomitant]
     Indication: MIGRAINE
     Dosage: UNK
  5. HYDROCHLOROTHIAZIDE [Concomitant]
     Indication: PERICARDIAL EFFUSION
     Dosage: UNK
  6. PREMARIN [Concomitant]
     Dosage: UNK
  7. PRILOSEC                           /00661201/ [Concomitant]
     Dosage: UNK

REACTIONS (9)
  - Drug withdrawal syndrome [Unknown]
  - Formication [Not Recovered/Not Resolved]
  - Blood urine present [Unknown]
  - Drug screen negative [Unknown]
  - Pruritus [Not Recovered/Not Resolved]
  - Weight decreased [Unknown]
  - Headache [Not Recovered/Not Resolved]
  - Application site pruritus [Unknown]
  - Application site erythema [Unknown]
